FAERS Safety Report 16227866 (Version 1)
Quarter: 2019Q2

REPORT INFORMATION
  Report Type: Spontaneous
  Country: US (occurrence: US)
  Receive Date: 20190423
  Receipt Date: 20190423
  Transmission Date: 20190711
  Serious: No
  Sender: FDA-Public Use
  Company Number: US-TAKEDA-2019TUS023692

PATIENT
  Sex: Female

DRUGS (1)
  1. ENTYVIO [Suspect]
     Active Substance: VEDOLIZUMAB
     Indication: SHORT-BOWEL SYNDROME
     Dosage: UNK
     Route: 042

REACTIONS (2)
  - Headache [Unknown]
  - Product use in unapproved indication [Unknown]
